FAERS Safety Report 15668902 (Version 2)
Quarter: 2018Q4

REPORT INFORMATION
  Report Type: Spontaneous
  Country: BE (occurrence: BE)
  Receive Date: 20181129
  Receipt Date: 20181208
  Transmission Date: 20190205
  Serious: Yes (Hospitalization, Other)
  Sender: FDA-Public Use
  Company Number: BE-ABBVIE-18S-013-2572315-00

PATIENT
  Age: 38 Year

DRUGS (5)
  1. TESTIM [Concomitant]
     Active Substance: TESTOSTERONE
     Indication: PRODUCT USED FOR UNKNOWN INDICATION
  2. ANDROGEL [Suspect]
     Active Substance: TESTOSTERONE
     Dosage: 2 ACTUATION ANDROGEL 16.5MG AT BEGINNING OF MAY AND BEGINNING OF JUNE
     Route: 065
  3. ANDROGEL [Suspect]
     Active Substance: TESTOSTERONE
     Dosage: 0.5 ACTUATION
     Route: 065
  4. ANDROGEL [Suspect]
     Active Substance: TESTOSTERONE
     Indication: HYPOGONADISM
     Dosage: 16.2 MG/G, APPLIES ON UPPER ARMS
     Route: 065
  5. ANDROGEL [Suspect]
     Active Substance: TESTOSTERONE
     Dosage: 1 ACTUATION OF THE ANDROGEL PUMP 16.5MG
     Route: 065

REACTIONS (9)
  - Cardiac disorder [Unknown]
  - Heart rate increased [Unknown]
  - Palpitations [Unknown]
  - Pallor [Unknown]
  - Blood testosterone increased [Unknown]
  - Presyncope [Unknown]
  - Dizziness [Unknown]
  - Malaise [Unknown]
  - Hyperhidrosis [Unknown]
